FAERS Safety Report 8364438-2 (Version None)
Quarter: 2012Q2

REPORT INFORMATION
  Report Type: 
  Country: None (occurrence: None)
  Receive Date: 20120516
  Receipt Date: 20120511
  Transmission Date: 20120825
  Serious: Yes (Life-Threatening)
  Sender: FDA-Public Use
  Company Number: US-BAYER-2012-047362

PATIENT
  Age: 68 Year
  Sex: Male

DRUGS (9)
  1. CRESTOR [Concomitant]
  2. NEXIUM [Concomitant]
  3. HUMULIN N [Concomitant]
  4. NEXAVAR [Suspect]
     Indication: HEPATIC NEOPLASM MALIGNANT
     Dosage: DAILY DOSE 400 MG
     Route: 048
     Dates: start: 20120413, end: 20120501
  5. WARFARIN SODIUM [Concomitant]
  6. FOLIC ACID [Concomitant]
  7. JANUVIA [Concomitant]
  8. METFORMIN HCL [Concomitant]
  9. HUMULIN R [Concomitant]

REACTIONS (1)
  - SKIN IRRITATION [None]
